FAERS Safety Report 10691309 (Version 1)
Quarter: 2015Q1

REPORT INFORMATION
  Report Type: Spontaneous
  Country: US (occurrence: US)
  Receive Date: 20150105
  Receipt Date: 20150105
  Transmission Date: 20150720
  Serious: No
  Sender: FDA-Public Use
  Company Number: US-GLAXOSMITHKLINE-US2014023370

PATIENT
  Age: 80 Year
  Sex: Male

DRUGS (1)
  1. ABREVA [Suspect]
     Active Substance: DOCOSANOL
     Indication: ORAL HERPES
     Dosage: UNK
     Route: 061
     Dates: start: 20141110

REACTIONS (4)
  - Application site vesicles [Not Recovered/Not Resolved]
  - Drug ineffective [Unknown]
  - Oral herpes [Not Recovered/Not Resolved]
  - Application site scab [Not Recovered/Not Resolved]
